FAERS Safety Report 16554141 (Version 1)
Quarter: 2019Q3

REPORT INFORMATION
  Report Type: Spontaneous
  Country: FR (occurrence: FR)
  Receive Date: 20190710
  Receipt Date: 20190710
  Transmission Date: 20191004
  Serious: Yes (Other)
  Sender: FDA-Public Use
  Company Number: FR-MYLANLABS-2019M1064353

PATIENT
  Age: 53 Year
  Sex: Female

DRUGS (2)
  1. CASPOFUNGIN [Suspect]
     Active Substance: CASPOFUNGIN
     Indication: FUNGAL ENDOCARDITIS
     Dosage: 140 MILLIGRAM, QD
     Route: 065
     Dates: start: 20180711
  2. CASPOFUNGIN [Suspect]
     Active Substance: CASPOFUNGIN
     Indication: FUNGAEMIA
     Dosage: 70 MILLIGRAM, QD
     Route: 065
     Dates: start: 20180704

REACTIONS (1)
  - Drug ineffective [Unknown]
